FAERS Safety Report 19479731 (Version 1)
Quarter: 2021Q2

REPORT INFORMATION
  Report Type: Report from Study
  Country: FR (occurrence: FR)
  Receive Date: 20210630
  Receipt Date: 20210630
  Transmission Date: 20210717
  Serious: Yes (Other)
  Sender: FDA-Public Use
  Company Number: FR-SEATTLE GENETICS-2017SGN02289

PATIENT

DRUGS (1)
  1. BRENTUXIMAB VEDOTIN?MPI [Suspect]
     Active Substance: BRENTUXIMAB VEDOTIN
     Indication: CUTANEOUS T-CELL LYMPHOMA
     Dosage: 1.8 MG/KG, UNK
     Route: 042
     Dates: start: 20170102, end: 20170630

REACTIONS (3)
  - Cutaneous T-cell lymphoma [Unknown]
  - Off label use [Unknown]
  - Pigmentation disorder [Unknown]
